FAERS Safety Report 4757132-8 (Version None)
Quarter: 2005Q3

REPORT INFORMATION
  Report Type: 
  Country: None (occurrence: None)
  Receive Date: 20050829
  Receipt Date: 20050819
  Transmission Date: 20060218
  Serious: Yes (Other)
  Sender: FDA-Public Use
  Company Number: 216683

PATIENT
  Age: 57 Year
  Sex: Male
  Weight: 84.8 kg

DRUGS (5)
  1. NUTROPIN AQ [Suspect]
     Indication: HYPOPITUITARISM
     Dosage: 0.56 MG, QD, SUBCUTANEOUS
     Route: 058
     Dates: start: 20040713
  2. SYNTHROID [Concomitant]
  3. PREVACID [Concomitant]
  4. DILANTIN [Concomitant]
  5. ALLEGRA [Concomitant]

REACTIONS (1)
  - COLON CANCER [None]
